FAERS Safety Report 11097676 (Version 1)
Quarter: 2015Q2

REPORT INFORMATION
  Report Type: Spontaneous
  Country: GB (occurrence: GB)
  Receive Date: 20150507
  Receipt Date: 20150507
  Transmission Date: 20150821
  Serious: Yes (Disabling)
  Sender: FDA-Public Use
  Company Number: GB-WATSON-2009-11399

PATIENT
  Age: 23 Year
  Sex: Male

DRUGS (1)
  1. CIPROFLOXACIN. [Suspect]
     Active Substance: CIPROFLOXACIN
     Indication: EPIDIDYMITIS
     Dosage: 1 G, UNK
     Route: 048
     Dates: start: 20071020, end: 20071022

REACTIONS (36)
  - Joint stiffness [Unknown]
  - Nail ridging [Unknown]
  - Dry mouth [Unknown]
  - Pruritus [Unknown]
  - Dermatitis contact [Unknown]
  - Skin wrinkling [Unknown]
  - Muscle twitching [Unknown]
  - Hyperacusis [Unknown]
  - Nightmare [Unknown]
  - Arthralgia [Unknown]
  - Musculoskeletal stiffness [Unknown]
  - Foot deformity [Unknown]
  - Paraesthesia [Unknown]
  - Burning sensation [Unknown]
  - Myalgia [Unknown]
  - Dysgeusia [Unknown]
  - Diarrhoea [Unknown]
  - Heart rate increased [Unknown]
  - Petechiae [Unknown]
  - Tongue biting [Unknown]
  - Ear pain [Unknown]
  - Dizziness [Unknown]
  - Abdominal pain upper [Unknown]
  - Dry eye [Unknown]
  - Visual impairment [Unknown]
  - Tinnitus [Unknown]
  - Neuralgia [Unknown]
  - Insomnia [Unknown]
  - Hypoaesthesia [Unknown]
  - Nervousness [Unknown]
  - Gastrooesophageal reflux disease [Unknown]
  - Tendonitis [Unknown]
  - Tension headache [Unknown]
  - Fatigue [Unknown]
  - Dry skin [Unknown]
  - Dysphagia [Unknown]
